FAERS Safety Report 4948929-X (Version None)
Quarter: 2006Q1

REPORT INFORMATION
  Report Type: 
  Country: None (occurrence: None)
  Receive Date: 20060316
  Receipt Date: 20060302
  Transmission Date: 20060701
  Serious: Yes (Other)
  Sender: FDA-Public Use
  Company Number: 2006-BP-02379RO

PATIENT
  Age: 24 Year
  Sex: Male

DRUGS (3)
  1. CITALOPRAM (CITALOPRAM) [Suspect]
     Indication: OBSESSIVE-COMPULSIVE DISORDER
     Dosage: 10 MG (20 MG), PO
     Route: 048
  2. BETAXOLOL [Concomitant]
  3. BUSPIRONE HCL [Concomitant]

REACTIONS (4)
  - DYSTONIA [None]
  - FACIAL SPASM [None]
  - GLOSSODYNIA [None]
  - MUSCLE TWITCHING [None]
